FAERS Safety Report 17204580 (Version 1)
Quarter: 2019Q4

REPORT INFORMATION
  Report Type: Spontaneous
  Country: IT (occurrence: IT)
  Receive Date: 20191226
  Receipt Date: 20191226
  Transmission Date: 20200122
  Serious: Yes (Hospitalization, Other)
  Sender: FDA-Public Use
  Company Number: IT-INCYTE CORPORATION-2019IN013044

PATIENT

DRUGS (1)
  1. JAKAVI [Suspect]
     Active Substance: RUXOLITINIB
     Indication: MYELOFIBROSIS
     Route: 065

REACTIONS (18)
  - Anaemia [Unknown]
  - Dizziness [Unknown]
  - Tympanic membrane perforation [Unknown]
  - Pain [Unknown]
  - Mycobacterium avium complex infection [Recovered/Resolved]
  - Purulent discharge [Unknown]
  - Lymphadenopathy [Unknown]
  - Syncope [Unknown]
  - Head injury [Unknown]
  - Herpes zoster [Unknown]
  - Condition aggravated [Unknown]
  - Pyrexia [Unknown]
  - Haematoma [Unknown]
  - Lymph node rupture [Unknown]
  - Decreased immune responsiveness [Unknown]
  - Lipoma [Unknown]
  - Blood creatinine increased [Unknown]
  - Squamous cell carcinoma [Unknown]

NARRATIVE: CASE EVENT DATE: 201310
